FAERS Safety Report 15223890 (Version 1)
Quarter: 2018Q3

REPORT INFORMATION
  Report Type: Spontaneous
  Country: US (occurrence: US)
  Receive Date: 20180705
  Receipt Date: 20180705
  Transmission Date: 20181010
  Serious: No
  Sender: FDA-Public Use
  Company Number: None

PATIENT
  Sex: Female
  Weight: 67.13 kg

DRUGS (2)
  1. ACTEMRA [Suspect]
     Active Substance: TOCILIZUMAB
     Indication: VASCULITIS NECROTISING
     Route: 058
     Dates: start: 201803
  2. ACTEMRA [Suspect]
     Active Substance: TOCILIZUMAB
     Indication: INTERVERTEBRAL DISC DEGENERATION
     Route: 058
     Dates: start: 201803

REACTIONS (1)
  - Transient ischaemic attack [None]
